FAERS Safety Report 10079601 (Version 1)
Quarter: 2014Q2

REPORT INFORMATION
  Report Type: Spontaneous
  Country: IT (occurrence: IT)
  Receive Date: 20140415
  Receipt Date: 20140415
  Transmission Date: 20141212
  Serious: Yes (Hospitalization)
  Sender: FDA-Public Use
  Company Number: IT-TEVA-473370ISR

PATIENT
  Age: 43 Year
  Sex: Male
  Weight: 75 kg

DRUGS (3)
  1. CISPLATINO TEVA ITALIA [Suspect]
     Indication: TESTICULAR CANCER METASTATIC
     Dosage: 38 MILLIGRAM DAILY;
     Route: 042
     Dates: start: 20131025, end: 20131227
  2. ETOPOSIDE TEVA [Suspect]
     Indication: TESTICULAR CANCER METASTATIC
     Dosage: 188 MILLIGRAM DAILY;
     Route: 042
     Dates: start: 20131025, end: 20131227
  3. BLEOPRIM [Suspect]
     Indication: TESTICULAR CANCER METASTATIC
     Dosage: 30 MILLIGRAM DAILY;
     Route: 042
     Dates: start: 20131025, end: 20131227

REACTIONS (4)
  - Cough [Unknown]
  - Dyspnoea [Unknown]
  - Lung infiltration [Unknown]
  - Respiratory failure [Unknown]
